FAERS Safety Report 12646841 (Version 3)
Quarter: 2016Q4

REPORT INFORMATION
  Report Type: Report from Study
  Country: JP (occurrence: JP)
  Receive Date: 20160812
  Receipt Date: 20161117
  Transmission Date: 20170207
  Serious: Yes (Hospitalization, Other)
  Sender: FDA-Public Use
  Company Number: JP-ASTRAZENECA-2016SE69687

PATIENT
  Age: 60 Year
  Sex: Female
  Weight: 44 kg

DRUGS (11)
  1. LANSOPRAZOLE OD [Concomitant]
     Active Substance: LANSOPRAZOLE
     Indication: GASTRIC DISORDER
     Dosage: NUMBER OF SEPARATE DOSAGES UNKNOWN 15 MG
     Route: 048
  2. HIRUDOID [Concomitant]
     Active Substance: GLYCOSAMINOGLYCANS
     Indication: DRY SKIN PROPHYLAXIS
     Dosage: DOSE UNKNOWN (ONE OR TWO TIMES DAILY)
     Route: 003
  3. MS-TWICELON [Concomitant]
     Indication: PAIN
     Dosage: NUMBER OF SEPARATE DOSAGES UNKNOWN 120 MG
     Route: 048
  4. LOXOPROFEN [Concomitant]
     Active Substance: LOXOPROFEN
     Indication: PAIN
     Dosage: NUMBER OF SEPARATE DOSAGES UNKNOWN 180 MG
     Route: 048
  5. MAGMITT [Concomitant]
     Active Substance: MAGNESIUM OXIDE
     Indication: CONSTIPATION
     Dosage: NUMBER OF SEPARATE DOSAGES UNKNOWN 990 MG
     Route: 048
     Dates: start: 20160611
  6. ZYPREXA [Concomitant]
     Active Substance: OLANZAPINE
     Indication: NAUSEA
     Dosage: NUMBER OF SEPARATE DOSAGES UNKNOWN 2.5 MG
     Route: 048
  7. PEROSPIRONE HYDROCHLORIDE HYDRATE [Concomitant]
     Active Substance: PEROSPIRONE HYDROCHLORIDE HYDRATE
     Indication: ANXIETY
     Dosage: AS NEEDS (UP TO THREE TIMES DAILY) 4 MG
     Route: 048
     Dates: start: 20160621
  8. TAGRISSO [Suspect]
     Active Substance: OSIMERTINIB
     Indication: NON-SMALL CELL LUNG CANCER
     Route: 048
     Dates: start: 20160531, end: 20160621
  9. AMITIZA [Concomitant]
     Active Substance: LUBIPROSTONE
     Indication: CONSTIPATION
     Dosage: NUMBER OF SEPARATE DOSAGES UNKNOWN 48 MCG
     Route: 048
  10. LORAZEPAM. [Concomitant]
     Active Substance: LORAZEPAM
     Indication: ANXIETY
     Dosage: AS NEEDS (UP TO THREE TIMES DAILY) 0.5 0.5
     Route: 048
     Dates: start: 20160621
  11. OPSO [Concomitant]
     Active Substance: MORPHINE HYDROCHLORIDE
     Indication: PAIN
     Dosage: AS NEEDS (INTAKE PER ONE HOUR ACCEPTABLE) 10 MG
     Route: 048

REACTIONS (3)
  - Lymphangiosis carcinomatosa [Unknown]
  - Interstitial lung disease [Recovering/Resolving]
  - Lymphadenopathy [Unknown]

NARRATIVE: CASE EVENT DATE: 20160621
